FAERS Safety Report 7908924-5 (Version None)
Quarter: 2011Q4

REPORT INFORMATION
  Report Type: 
  Country: None (occurrence: None)
  Receive Date: 20111108
  Receipt Date: 20111028
  Transmission Date: 20120403
  Serious: Yes (Other)
  Sender: FDA-Public Use
  Company Number: WAES 0904USA04272

PATIENT
  Age: 60 Year
  Sex: Male

DRUGS (5)
  1. ZOCOR [Suspect]
     Indication: ACUTE CORONARY SYNDROME
     Dosage: 40MG/DAILY, PO
     Route: 048
     Dates: start: 20070411
  2. PLACEBO [Suspect]
     Indication: ACUTE CORONARY SYNDROME
     Dosage: 1 TAB/DAILY, PO; 1 TAB DAILY, PO
     Route: 048
     Dates: start: 20070411
  3. PLACEBO [Suspect]
     Indication: ACUTE CORONARY SYNDROME
     Dosage: 1 TAB/DAILY, PO; 1 TAB DAILY, PO
     Route: 048
     Dates: start: 20070411
  4. ALTACE HCT [Concomitant]
  5. ASPIRIN [Concomitant]

REACTIONS (3)
  - BASAL CELL CARCINOMA [None]
  - NEOPLASM RECURRENCE [None]
  - ACTINIC KERATOSIS [None]
